FAERS Safety Report 8829543 (Version 1)
Quarter: 2012Q4

REPORT INFORMATION
  Report Type: 
  Country: US (occurrence: US)
  Receive Date: 20121008
  Receipt Date: 20121008
  Transmission Date: 20130627
  Serious: Yes (Other)
  Sender: FDA-Public Use
  Company Number: US-PFIZER INC-2012244308

PATIENT
  Age: 60 Year
  Sex: Male

DRUGS (6)
  1. GENOTROPIN MINIQUICK [Suspect]
     Indication: HYPOPITUITARISM
     Dosage: 0.4 mg, daily
     Route: 058
  2. VITAMIN D3 [Concomitant]
     Dosage: UNK
  3. ACETYLSALICYLIC ACID [Concomitant]
     Dosage: 81 mg, UNK (Low dose)
  4. HYDROCORT [Concomitant]
     Dosage: 5 mg, UNK
  5. SYNTHROID [Concomitant]
     Dosage: 25 ug, UNK
  6. ANDROGEL [Concomitant]
     Dosage: 25 mg, UNK (1%)

REACTIONS (2)
  - Carpal tunnel syndrome [Unknown]
  - Condition aggravated [Unknown]
